FAERS Safety Report 8956969 (Version 1)
Quarter: 2012Q4

REPORT INFORMATION
  Report Type: Spontaneous
  Country: US (occurrence: None)
  Receive Date: 20121205
  Receipt Date: 20121205
  Transmission Date: 20130627
  Serious: Yes (Disabling)
  Sender: FDA-Public Use
  Company Number: None

PATIENT
  Sex: Male
  Weight: 90.72 kg

DRUGS (1)
  1. LEVOFLOXACIN 500 MG LUPIN [Suspect]
     Indication: BACTERIAL INFECTION
     Route: 048
     Dates: start: 20120804, end: 20120813

REACTIONS (3)
  - Arthralgia [None]
  - Activities of daily living impaired [None]
  - Gait disturbance [None]
